FAERS Safety Report 21382051 (Version 1)
Quarter: 2022Q3

REPORT INFORMATION
  Report Type: Spontaneous
  Country: IL (occurrence: IL)
  Receive Date: 20220927
  Receipt Date: 20220927
  Transmission Date: 20221027
  Serious: Yes (Other)
  Sender: FDA-Public Use
  Company Number: IL-VER-202200004

PATIENT
  Age: 11 Year
  Sex: Female

DRUGS (2)
  1. TRIPTORELIN PAMOATE [Suspect]
     Active Substance: TRIPTORELIN PAMOATE
     Indication: Delayed puberty
     Route: 065
  2. TRIPTORELIN PAMOATE [Suspect]
     Active Substance: TRIPTORELIN PAMOATE
     Indication: Off label use
     Route: 065

REACTIONS (2)
  - Aphasia [Not Recovered/Not Resolved]
  - Off label use [Unknown]
